FAERS Safety Report 22619948 (Version 2)
Quarter: 2023Q2

REPORT INFORMATION
  Report Type: Spontaneous
  Country: CN (occurrence: CN)
  Receive Date: 20230620
  Receipt Date: 20230622
  Transmission Date: 20230722
  Serious: Yes (Hospitalization, Other)
  Sender: FDA-Public Use
  Company Number: CN-009507513-2306CHN003715

PATIENT
  Age: 72 Year
  Sex: Female
  Weight: 55 kg

DRUGS (1)
  1. TEMODAL [Suspect]
     Active Substance: TEMOZOLOMIDE
     Indication: Gliomatosis cerebri
     Dosage: 200 MG, QD
     Route: 048
     Dates: start: 20230503, end: 20230524

REACTIONS (3)
  - Myelosuppression [Recovering/Resolving]
  - Glioma [Unknown]
  - Movement disorder [Unknown]

NARRATIVE: CASE EVENT DATE: 20230501
